FAERS Safety Report 9719906 (Version 2)
Quarter: 2014Q1

REPORT INFORMATION
  Report Type: Spontaneous
  Country: IT (occurrence: IT)
  Receive Date: 20131128
  Receipt Date: 20140121
  Transmission Date: 20141002
  Serious: Yes (Other)
  Sender: FDA-Public Use
  Company Number: IT-TEVA-446077ISR

PATIENT
  Age: 75 Year
  Sex: Female

DRUGS (1)
  1. AMOXICILLIN W/CLAVULANIC ACID [Suspect]
     Indication: INFLUENZA
     Dosage: 2 G DAILY
     Route: 048
     Dates: start: 20131025, end: 20131027

REACTIONS (1)
  - Palatal oedema [Recovering/Resolving]
